FAERS Safety Report 8577411-6 (Version None)
Quarter: 2012Q3

REPORT INFORMATION
  Report Type: 
  Country: None (occurrence: None)
  Receive Date: 20120807
  Receipt Date: 20120727
  Transmission Date: 20120928
  Serious: Yes (Other)
  Sender: FDA-Public Use
  Company Number: DE-PFIZER INC-2012183655

PATIENT
  Age: 50 Year
  Sex: Male

DRUGS (4)
  1. IDARUBICIN HCL [Suspect]
     Dosage: 22.56 MG, UNK
     Dates: start: 20120719, end: 20120724
  2. CYTARABINE [Suspect]
     Dosage: 188 MG, UNK
     Dates: start: 20120719, end: 20120724
  3. ATRACURIUM BESYLATE [Suspect]
     Dosage: 90 MG, UNK
     Dates: start: 20120725
  4. ETOPOSIDE [Suspect]
     Dosage: 188 MG, UNK
     Dates: start: 20120719, end: 20120721

REACTIONS (2)
  - NEUTROPENIC COLITIS [None]
  - PNEUMONIA [None]
